FAERS Safety Report 13469094 (Version 2)
Quarter: 2017Q2

REPORT INFORMATION
  Report Type: Spontaneous
  Country: US (occurrence: US)
  Receive Date: 20170421
  Receipt Date: 20170427
  Transmission Date: 20170830
  Serious: Yes (Other)
  Sender: FDA-Public Use
  Company Number: US-PFIZER INC-2017174507

PATIENT
  Age: 64 Year
  Sex: Female

DRUGS (3)
  1. CHANTIX [Interacting]
     Active Substance: VARENICLINE TARTRATE
     Dosage: 0.5 MG, 2X/DAY [TAKING IT IN MORNING AND NIGHT]
     Route: 048
     Dates: start: 201704, end: 20170418
  2. SYNTHROID [Interacting]
     Active Substance: LEVOTHYROXINE SODIUM
     Indication: THYROID DISORDER
     Dosage: UNK
  3. CHANTIX [Suspect]
     Active Substance: VARENICLINE TARTRATE
     Indication: SMOKING CESSATION THERAPY
     Dosage: 0.5 MG, 1X/DAY
     Route: 048
     Dates: start: 201704, end: 201704

REACTIONS (5)
  - Emphysema [Not Recovered/Not Resolved]
  - Drug interaction [Not Recovered/Not Resolved]
  - Dyspnoea [Not Recovered/Not Resolved]
  - Chronic obstructive pulmonary disease [Not Recovered/Not Resolved]
  - Condition aggravated [Not Recovered/Not Resolved]

NARRATIVE: CASE EVENT DATE: 201704
